FAERS Safety Report 19389447 (Version 2)
Quarter: 2021Q2

REPORT INFORMATION
  Report Type: Spontaneous
  Country: FR (occurrence: FR)
  Receive Date: 20210608
  Receipt Date: 20210611
  Transmission Date: 20210717
  Serious: Yes (Hospitalization, Other)
  Sender: FDA-Public Use
  Company Number: FR-PFIZER INC-2021633299

PATIENT
  Age: 84 Year

DRUGS (1)
  1. AMLODIPINE BESILATE [Suspect]
     Active Substance: AMLODIPINE BESYLATE
     Indication: HYPERTENSION
     Dosage: 5 MG, DAILY

REACTIONS (3)
  - Intentional product misuse [Unknown]
  - Product dose omission issue [Unknown]
  - Drug reaction with eosinophilia and systemic symptoms [Recovered/Resolved]
